FAERS Safety Report 7545989-7 (Version None)
Quarter: 2011Q2

REPORT INFORMATION
  Report Type: 
  Country: None (occurrence: None)
  Receive Date: 20110614
  Receipt Date: 20110531
  Transmission Date: 20111010
  Serious: Yes (Hospitalization, Other)
  Sender: FDA-Public Use
  Company Number: PHFR2011GB03375

PATIENT
  Sex: Male

DRUGS (2)
  1. CLOZAPINE [Suspect]
     Indication: SCHIZOPHRENIA
     Route: 048
     Dates: start: 19930224, end: 20110406
  2. DRUG USED IN DIABETES [Concomitant]

REACTIONS (11)
  - EMOTIONAL DISTRESS [None]
  - WEIGHT INCREASED [None]
  - DIABETES MELLITUS [None]
  - SEDATION [None]
  - SALIVARY HYPERSECRETION [None]
  - PSYCHOTIC DISORDER [None]
  - HYPERTENSION [None]
  - DIARRHOEA [None]
  - TREMOR [None]
  - BODY TEMPERATURE INCREASED [None]
  - VOMITING [None]
